FAERS Safety Report 8810294 (Version 2)
Quarter: 2013Q4

REPORT INFORMATION
  Report Type: Spontaneous
  Country: US (occurrence: US)
  Receive Date: 20120926
  Receipt Date: 20131031
  Transmission Date: 20140711
  Serious: Yes (Other)
  Sender: FDA-Public Use
  Company Number: US-009507513-1209USA009172

PATIENT
  Sex: 0

DRUGS (3)
  1. CRIXIVAN [Suspect]
     Indication: HIV INFECTION
     Dosage: UNK
     Dates: start: 1998, end: 1999
  2. VIDEX [Concomitant]
     Indication: HIV INFECTION
     Dosage: UNK
     Dates: start: 1998
  3. ZIAGEN [Concomitant]
     Indication: HIV INFECTION
     Dosage: UNK
     Dates: start: 1998

REACTIONS (10)
  - Lymphoma [Unknown]
  - Deformity [Unknown]
  - Lipodystrophy acquired [Not Recovered/Not Resolved]
  - Lymphoma operation [Unknown]
  - Obesity [Unknown]
  - Back pain [Unknown]
  - Type 2 diabetes mellitus [Unknown]
  - Blood cholesterol increased [Unknown]
  - Dysphagia [Unknown]
  - Dyspnoea [Unknown]
